FAERS Safety Report 8373058-5 (Version None)
Quarter: 2012Q2

REPORT INFORMATION
  Report Type: 
  Country: None (occurrence: None)
  Receive Date: 20120521
  Receipt Date: 20120511
  Transmission Date: 20120825
  Serious: Yes (Life-Threatening, Hospitalization, Other)
  Sender: FDA-Public Use
  Company Number: HU-UCBSA-055913

PATIENT
  Age: 48 Year
  Sex: Female

DRUGS (6)
  1. FOLIC ACID [Concomitant]
     Indication: PROPHYLAXIS
     Route: 048
     Dates: end: 20120504
  2. CIMZIA [Suspect]
     Route: 058
     Dates: start: 20120210, end: 20120327
  3. CIMZIA [Suspect]
     Indication: RHEUMATOID ARTHRITIS
     Route: 058
     Dates: start: 20120327, end: 20120410
  4. METHOTREXATE [Concomitant]
     Indication: RHEUMATOID ARTHRITIS
     Route: 048
     Dates: end: 20120511
  5. POTASSIUM CHLORIDE [Concomitant]
     Indication: PROPHYLAXIS
     Route: 048
  6. METHYLPREDNISOLONE [Concomitant]
     Indication: RHEUMATOID ARTHRITIS
     Route: 048

REACTIONS (3)
  - CELLULITIS [None]
  - HYPOTONIA [None]
  - PYODERMA [None]
